FAERS Safety Report 9586544 (Version 1)
Quarter: 2013Q4

REPORT INFORMATION
  Report Type: Spontaneous
  Country: US (occurrence: US)
  Receive Date: 20131003
  Receipt Date: 20131003
  Transmission Date: 20140711
  Serious: Yes (Other)
  Sender: FDA-Public Use
  Company Number: US-ASTELLAS-2013US010246

PATIENT
  Age: 91 Year
  Sex: Female

DRUGS (2)
  1. MYRBETRIQ [Suspect]
     Indication: POLLAKIURIA
     Dosage: UNK
     Route: 048
  2. ARICEPT [Concomitant]
     Indication: DEMENTIA
     Dosage: UNK
     Route: 065

REACTIONS (2)
  - Paranoia [Unknown]
  - Mood altered [Unknown]
